FAERS Safety Report 15861585 (Version 1)
Quarter: 2019Q1

REPORT INFORMATION
  Report Type: Spontaneous
  Country: DE (occurrence: DE)
  Receive Date: 20190124
  Receipt Date: 20190124
  Transmission Date: 20190417
  Serious: Yes (Hospitalization)
  Sender: FDA-Public Use
  Company Number: DE-ACCORD-103268

PATIENT
  Age: 80 Year
  Sex: Male
  Weight: 56 kg

DRUGS (11)
  1. EPLERENONE. [Concomitant]
     Active Substance: EPLERENONE
     Dosage: 25 MG, 1-0-0-0
     Route: 048
  2. MAGNESIUM [Concomitant]
     Active Substance: MAGNESIUM
     Dosage: 300 MG, 0-0-1-0
     Route: 048
  3. ALLOPURINOL. [Suspect]
     Active Substance: ALLOPURINOL
     Indication: PRODUCT USED FOR UNKNOWN INDICATION
     Dosage: 100 MG, 0-1-0-0
     Route: 048
  4. PHENPROCOUMON [Suspect]
     Active Substance: PHENPROCOUMON
     Indication: PRODUCT USED FOR UNKNOWN INDICATION
     Dosage: NACH INR
     Route: 048
  5. DIGITOXIN [Concomitant]
     Active Substance: DIGITOXIN
     Dosage: 0.07 MG, 1-0-0-0
     Route: 048
  6. COENZYME A [Concomitant]
     Active Substance: COENZYME A
     Dosage: 50 MG, 0-0-1-0
     Route: 048
  7. TORASEMIDE [Concomitant]
     Active Substance: TORSEMIDE
     Dosage: 10 MG, 1-0.5-0.5-0
     Route: 048
  8. AQUAPHOR [Concomitant]
     Active Substance: PETROLATUM
     Dosage: 10 MG, 1-0-0-0
     Route: 048
  9. METOPROLOL. [Concomitant]
     Active Substance: METOPROLOL
     Dosage: 47.5 MG, 0.5-0-0.5-0
     Route: 048
  10. FLUVASTATIN [Concomitant]
     Active Substance: FLUVASTATIN SODIUM
     Dosage: 80 MG, 0-0-1-0
     Route: 048
  11. IRON [Concomitant]
     Active Substance: IRON
     Dosage: 50 MG, 0-1-0-0
     Route: 048

REACTIONS (1)
  - Respiratory tract haemorrhage [Unknown]

NARRATIVE: CASE EVENT DATE: 20151109
